FAERS Safety Report 19990273 (Version 1)
Quarter: 2021Q4

REPORT INFORMATION
  Report Type: Spontaneous
  Country: US (occurrence: US)
  Receive Date: 20211022
  Receipt Date: 20211022
  Transmission Date: 20220303
  Serious: No
  Sender: FDA-Public Use
  Company Number: None

PATIENT

DRUGS (2)
  1. SEMGLEE (INSULIN GLARGINE) [Suspect]
     Active Substance: INSULIN GLARGINE
  2. HUMULIN R U-500 KWIKPEN [Suspect]
     Active Substance: INSULIN HUMAN

REACTIONS (1)
  - Product appearance confusion [None]
